FAERS Safety Report 24016426 (Version 1)
Quarter: 2024Q2

REPORT INFORMATION
  Report Type: Spontaneous
  Country: US (occurrence: None)
  Receive Date: 20240626
  Receipt Date: 20240626
  Transmission Date: 20240716
  Serious: Yes (Life-Threatening, Hospitalization, Disabling)
  Sender: FDA-Public Use
  Company Number: None

PATIENT
  Age: 83 Year
  Sex: Female
  Weight: 105.75 kg

DRUGS (5)
  1. MACRODANTIN [Suspect]
     Active Substance: NITROFURANTOIN
     Indication: Urinary tract infection
     Dosage: OTHER QUANTITY : 1 CAPSULE(S);?FREQUENCY : DAILY;?
     Route: 048
  2. Oxygen 24/7 [Concomitant]
  3. PREDNISONE [Concomitant]
     Active Substance: PREDNISONE
  4. DEVICE [Concomitant]
     Active Substance: DEVICE
  5. INSULIN [Concomitant]

REACTIONS (1)
  - Product communication issue [None]
